FAERS Safety Report 14847255 (Version 1)
Quarter: 2018Q2

REPORT INFORMATION
  Report Type: Spontaneous
  Country: CN (occurrence: CN)
  Receive Date: 20180504
  Receipt Date: 20180504
  Transmission Date: 20180711
  Serious: Yes (Hospitalization, Other)
  Sender: FDA-Public Use
  Company Number: CN-009507513-1804CHN011178

PATIENT
  Age: 66 Year
  Sex: Male

DRUGS (6)
  1. CARBIDOPA (+) LEVODOPA [Suspect]
     Active Substance: CARBIDOPA\LEVODOPA
     Indication: PARKINSON^S DISEASE
     Dosage: HALF A PILL EVERY 6 H
     Route: 048
  2. PIRIBEDIL [Suspect]
     Active Substance: PIRIBEDIL
     Indication: PARKINSON^S DISEASE
  3. CINEPAZIDE [Concomitant]
     Active Substance: CINEPAZIDE
     Dosage: 320 MG; QD
  4. SELEGILINE [Suspect]
     Active Substance: SELEGILINE
     Indication: PARKINSON^S DISEASE
  5. CARBIDOPA (+) LEVODOPA [Suspect]
     Active Substance: CARBIDOPA\LEVODOPA
     Dosage: QUARTER OF A PILL EVERY 6 HOURS
     Route: 048
  6. ALPRAZOLAM. [Concomitant]
     Active Substance: ALPRAZOLAM
     Indication: HYPNOTHERAPY
     Dosage: AT NIGHT

REACTIONS (1)
  - Psychotic symptom [Recovering/Resolving]
